FAERS Safety Report 7901473-X (Version None)
Quarter: 2011Q4

REPORT INFORMATION
  Report Type: 
  Country: None (occurrence: None)
  Receive Date: 20111108
  Receipt Date: 20111028
  Transmission Date: 20120403
  Serious: Yes (Other)
  Sender: FDA-Public Use
  Company Number: US-JNJFOC-20111013369

PATIENT
  Sex: Female
  Weight: 71.67 kg

DRUGS (9)
  1. LIBRAX [Concomitant]
     Indication: GASTRIC DISORDER
     Route: 048
     Dates: start: 20040101
  2. MAXZIDE [Concomitant]
     Indication: SWELLING
     Route: 048
     Dates: start: 20000101
  3. TRILEPTAL [Concomitant]
     Indication: BIPOLAR DISORDER
     Route: 048
     Dates: start: 20040101
  4. SEROQUEL XR [Concomitant]
     Indication: SLEEP DISORDER THERAPY
     Route: 048
     Dates: start: 20080101
  5. REMICADE [Suspect]
     Indication: CROHN'S DISEASE
     Route: 042
     Dates: start: 20090101
  6. GEODON [Concomitant]
     Indication: BIPOLAR DISORDER
     Route: 048
     Dates: start: 20080101
  7. PRILOSEC [Concomitant]
     Indication: GASTRIC DISORDER
     Route: 048
     Dates: start: 20080101
  8. OGEN [Concomitant]
     Indication: HORMONE REPLACEMENT THERAPY
     Route: 048
     Dates: start: 20000101
  9. AMBIEN CR [Concomitant]
     Indication: SLEEP DISORDER THERAPY
     Route: 048
     Dates: start: 20080101

REACTIONS (2)
  - NODULE [None]
  - SKIN MASS [None]
